FAERS Safety Report 13400587 (Version 2)
Quarter: 2017Q2

REPORT INFORMATION
  Report Type: Spontaneous
  Country: US (occurrence: US)
  Receive Date: 20170404
  Receipt Date: 20170426
  Transmission Date: 20170830
  Serious: No
  Sender: FDA-Public Use
  Company Number: GXBR2017US001245

PATIENT
  Age: 78 Year
  Sex: Female
  Weight: 68.27 kg

DRUGS (1)
  1. BIMATOPROST. [Suspect]
     Active Substance: BIMATOPROST
     Indication: EYELASH THICKENING
     Dosage: UNK DF, QHS
     Route: 061
     Dates: start: 20170302

REACTIONS (2)
  - Madarosis [Not Recovered/Not Resolved]
  - Drug ineffective [Not Recovered/Not Resolved]

NARRATIVE: CASE EVENT DATE: 20170302
